FAERS Safety Report 17204557 (Version 1)
Quarter: 2019Q4

REPORT INFORMATION
  Report Type: Spontaneous
  Country: SE (occurrence: SE)
  Receive Date: 20191226
  Receipt Date: 20191226
  Transmission Date: 20200122
  Serious: Yes (Hospitalization)
  Sender: FDA-Public Use
  Company Number: SE-009507513-1912SWE008348

PATIENT
  Sex: Female

DRUGS (7)
  1. SERTRALINE HYDROCHLORIDE. [Suspect]
     Active Substance: SERTRALINE HYDROCHLORIDE
     Dosage: 800 MILLIGRAM
     Route: 048
     Dates: start: 20190318, end: 20190318
  2. QUETIAPINE FUMARATE. [Suspect]
     Active Substance: QUETIAPINE FUMARATE
     Dosage: 2 GRAM
     Route: 048
     Dates: start: 20190318, end: 20190318
  3. PROPAVAN [Suspect]
     Active Substance: PROPIOMAZINE
     Dosage: 1 GRAM
     Route: 048
     Dates: start: 20190318, end: 20190318
  4. ATARAX [Suspect]
     Active Substance: HYDROXYZINE HYDROCHLORIDE
     Dosage: 1.9 GRAM
     Route: 048
     Dates: start: 20190318, end: 20190318
  5. IBUPROFEN. [Suspect]
     Active Substance: IBUPROFEN
     Dosage: 3.6 GRAM
     Route: 048
     Dates: start: 20190318, end: 20190318
  6. OXASCAND [Suspect]
     Active Substance: OXAZEPAM
     Dosage: 50 MILLIGRAM
     Route: 048
     Dates: start: 20190318, end: 20190318
  7. MIRTAZAPINE. [Suspect]
     Active Substance: MIRTAZAPINE
     Dosage: 315 MILLIGRAM
     Route: 048
     Dates: start: 20190318, end: 20190318

REACTIONS (3)
  - Intentional overdose [Unknown]
  - Intentional self-injury [Unknown]
  - Depressed level of consciousness [Unknown]

NARRATIVE: CASE EVENT DATE: 20190318
